FAERS Safety Report 7447497-0 (Version None)
Quarter: 2011Q2

REPORT INFORMATION
  Report Type: 
  Country: None (occurrence: None)
  Receive Date: 20110429
  Receipt Date: 20110422
  Transmission Date: 20111010
  Serious: Yes (Disabling, Other)
  Sender: FDA-Public Use
  Company Number: JP-SP-2011-02167

PATIENT
  Sex: Male

DRUGS (3)
  1. NATEGLINIDE [Concomitant]
     Indication: DIABETES MELLITUS
  2. BENZAFIBRATE [Concomitant]
     Indication: HYPERLIPIDAEMIA
  3. IMMUCYST [Suspect]
     Indication: BLADDER CANCER
     Route: 043
     Dates: start: 20100301, end: 20100401

REACTIONS (8)
  - HAEMATURIA [None]
  - TUBERCULOSIS BLADDER [None]
  - POLLAKIURIA [None]
  - HYDRONEPHROSIS [None]
  - PYURIA [None]
  - BLADDER IRRITATION [None]
  - CYSTITIS NONINFECTIVE [None]
  - REDUCED BLADDER CAPACITY [None]
